FAERS Safety Report 7547455-1 (Version None)
Quarter: 2011Q2

REPORT INFORMATION
  Report Type: 
  Country: None (occurrence: None)
  Receive Date: 20110614
  Receipt Date: 20110613
  Transmission Date: 20111010
  Serious: Yes (Other)
  Sender: FDA-Public Use
  Company Number: JP-PFIZER INC-2011128322

PATIENT
  Age: 60 Year
  Sex: Male

DRUGS (2)
  1. LYRICA [Suspect]
     Dosage: 300 MG, DAILY
     Route: 048
     Dates: start: 20110526
  2. LYRICA [Suspect]
     Dosage: 225 MG, DAILY
     Route: 048
     Dates: end: 20110525

REACTIONS (2)
  - HYPERSOMNIA [None]
  - LOSS OF CONSCIOUSNESS [None]
